FAERS Safety Report 4801689-5 (Version None)
Quarter: 2005Q4

REPORT INFORMATION
  Report Type: 
  Country: None (occurrence: None)
  Receive Date: 20051018
  Receipt Date: 20051014
  Transmission Date: 20060501
  Serious: Yes (Hospitalization)
  Sender: FDA-Public Use
  Company Number: FRPFM-E-20050102

PATIENT
  Age: 55 Year
  Sex: Male

DRUGS (2)
  1. NAVELBINE [Suspect]
     Indication: NON-SMALL CELL LUNG CANCER
     Route: 042
     Dates: start: 20050209
  2. CISPLATIN [Suspect]
     Indication: NON-SMALL CELL LUNG CANCER
     Route: 042
     Dates: start: 20050209

REACTIONS (6)
  - AGRANULOCYTOSIS [None]
  - CHILLS [None]
  - DIARRHOEA [None]
  - HYPOKALAEMIA [None]
  - NEUTROPENIA [None]
  - VOMITING [None]
